FAERS Safety Report 4534118-X (Version None)
Quarter: 2004Q4

REPORT INFORMATION
  Report Type: 
  Country: None (occurrence: None)
  Receive Date: 20041029
  Receipt Date: 20041029
  Transmission Date: 20050328
  Serious: No
  Sender: FDA-Public Use
  Company Number: None

PATIENT
  Age: 10 Year
  Sex: Male

DRUGS (2)
  1. ZARONTIN [Suspect]
     Dosage: SOLUTION
  2. NEURONTIN [Suspect]
     Dosage: SOLUTION

REACTIONS (1)
  - MEDICATION ERROR [None]
